FAERS Safety Report 8842436 (Version 1)
Quarter: 2012Q4

REPORT INFORMATION
  Report Type: 
  Country: US (occurrence: US)
  Receive Date: 20121016
  Receipt Date: 20121016
  Transmission Date: 20130627
  Serious: No
  Sender: FDA-Public Use
  Company Number: US-009507513-1210USA004770

PATIENT
  Sex: Male

DRUGS (2)
  1. PEGINTRON [Suspect]
     Indication: HEPATITIS C
     Route: 058
  2. REBETOL [Suspect]
     Indication: HEPATITIS C
     Dosage: 600 mg, bid
     Route: 048

REACTIONS (2)
  - Neutropenia [Unknown]
  - Thrombocytopenia [Unknown]
